FAERS Safety Report 23631065 (Version 1)
Quarter: 2024Q1

REPORT INFORMATION
  Report Type: Spontaneous
  Country: DE (occurrence: DE)
  Receive Date: 20240314
  Receipt Date: 20240314
  Transmission Date: 20240410
  Serious: Yes (Other)
  Sender: FDA-Public Use
  Company Number: DE-EMA-2024228-AUTODUP-1709152613384

PATIENT
  Age: 88 Year
  Sex: Female

DRUGS (1)
  1. RIVASTIGMINE [Suspect]
     Active Substance: RIVASTIGMINE
     Indication: Dementia
     Dosage: 9.5 MILLIGRAM, ONCE A DAY
     Route: 065

REACTIONS (7)
  - Pancreatitis [Unknown]
  - Diarrhoea [Unknown]
  - Chromaturia [Unknown]
  - Faeces discoloured [Unknown]
  - Weight decreased [Unknown]
  - Dehydration [Unknown]
  - Abdominal pain upper [Unknown]
